FAERS Safety Report 25206993 (Version 3)
Quarter: 2025Q2

REPORT INFORMATION
  Report Type: Report from Study
  Country: CA (occurrence: CA)
  Receive Date: 20250417
  Receipt Date: 20250605
  Transmission Date: 20250717
  Serious: Yes (Other)
  Sender: TAKEDA
  Company Number: CA-TAKEDA-2025TUS037142

PATIENT
  Age: 28 Year
  Sex: Male

DRUGS (5)
  1. VEDOLIZUMAB [Suspect]
     Active Substance: VEDOLIZUMAB
     Indication: Colitis ulcerative
  2. VEDOLIZUMAB [Suspect]
     Active Substance: VEDOLIZUMAB
     Dates: start: 20250529, end: 20250529
  3. MESALAMINE [Concomitant]
     Active Substance: MESALAMINE
  4. PREDNISONE [Concomitant]
     Active Substance: PREDNISONE
  5. Salofalk [Concomitant]

REACTIONS (6)
  - Colitis ulcerative [Unknown]
  - Emotional distress [Unknown]
  - Weight decreased [Unknown]
  - Off label use [Unknown]
  - Loss of therapeutic response [Unknown]
  - Asthenia [Unknown]

NARRATIVE: CASE EVENT DATE: 20250401
